FAERS Safety Report 23518878 (Version 1)
Quarter: 2024Q1

REPORT INFORMATION
  Report Type: Spontaneous
  Country: US (occurrence: None)
  Receive Date: 20240213
  Receipt Date: 20240213
  Transmission Date: 20240410
  Serious: Yes (Other)
  Sender: FDA-Public Use
  Company Number: None

PATIENT
  Age: 67 Year
  Sex: Male
  Weight: 81.9 kg

DRUGS (2)
  1. TETRACYCLINE [Suspect]
     Active Substance: TETRACYCLINE
     Indication: Helicobacter infection
     Dosage: 1 MG 4 TIMES A DAY ORAL
     Route: 048
  2. METRONIDAZOLE [Suspect]
     Active Substance: METRONIDAZOLE

REACTIONS (6)
  - Headache [None]
  - Gastritis [None]
  - Diarrhoea [None]
  - Pyrexia [None]
  - Therapy interrupted [None]
  - Symptom recurrence [None]

NARRATIVE: CASE EVENT DATE: 20230109
